FAERS Safety Report 9685071 (Version 2)
Quarter: 2013Q4

REPORT INFORMATION
  Report Type: Spontaneous
  Country: KR (occurrence: KR)
  Receive Date: 20131113
  Receipt Date: 20131113
  Transmission Date: 20140711
  Serious: Yes (Other)
  Sender: FDA-Public Use
  Company Number: KR-009507513-1309KOR003849

PATIENT
  Age: 3 Year
  Sex: Female
  Weight: 15 kg

DRUGS (4)
  1. ESMERON [Suspect]
     Indication: GENERAL ANAESTHESIA
     Dosage: 0.6 MG/KG, ONCE
     Route: 042
  2. MEICELIN [Concomitant]
     Indication: GENERAL ANAESTHESIA
     Route: 042
  3. ATROPINE SULFATE [Concomitant]
     Indication: GENERAL ANAESTHESIA
     Dosage: 0.01 MG/KG, ONCE
     Route: 042
  4. THIOPENTAL SODIUM [Concomitant]
     Indication: GENERAL ANAESTHESIA
     Dosage: 5 MG/KG, ONCE
     Route: 042

REACTIONS (6)
  - Type I hypersensitivity [Recovered/Resolved]
  - Wheezing [Recovered/Resolved]
  - Cough [Recovered/Resolved]
  - Anaphylactic reaction [Recovered/Resolved]
  - Rash [Recovered/Resolved]
  - Hypotension [Recovered/Resolved]
